FAERS Safety Report 14079674 (Version 1)
Quarter: 2017Q4

REPORT INFORMATION
  Report Type: Spontaneous
  Country: US (occurrence: US)
  Receive Date: 20171012
  Receipt Date: 20171012
  Transmission Date: 20180321
  Serious: No
  Sender: FDA-Public Use
  Company Number: US-AMNEAL PHARMACEUTICALS-2017AMN00725

PATIENT
  Sex: Female

DRUGS (5)
  1. LOVASTATIN. [Concomitant]
     Active Substance: LOVASTATIN
  2. METFORMIN TABLETS [Concomitant]
     Dosage: 1000 MG, 2X/DAY
  3. GLIMEPIRIDE TABLETS [Concomitant]
     Active Substance: GLIMEPIRIDE
     Dosage: UNK, 4X/DAY
  4. LOSARTAN. [Concomitant]
     Active Substance: LOSARTAN
  5. DICLOFENAC SODIUM. [Suspect]
     Active Substance: DICLOFENAC SODIUM
     Indication: PAIN IN EXTREMITY
     Dosage: UNK, 4X/DAY (2-4 GRAMS)
     Dates: start: 201702

REACTIONS (1)
  - Application site pain [Not Recovered/Not Resolved]
